FAERS Safety Report 5781759-8 (Version None)
Quarter: 2008Q2

REPORT INFORMATION
  Report Type: 
  Country: None (occurrence: None)
  Receive Date: 20080609
  Receipt Date: 20080522
  Transmission Date: 20081010
  Serious: Yes (Hospitalization)
  Sender: FDA-Public Use
  Company Number: GAM-096-08-FR

PATIENT
  Age: 55 Year
  Sex: Female

DRUGS (1)
  1. OCTAGAM [Suspect]
     Indication: NERVE ROOT LESION
     Dosage: 30 G  I.V.
     Route: 042
     Dates: start: 20080325, end: 20080330

REACTIONS (3)
  - ABDOMINAL PAIN [None]
  - CHEST PAIN [None]
  - TREMOR [None]
